FAERS Safety Report 19843412 (Version 1)
Quarter: 2021Q3

REPORT INFORMATION
  Report Type: Spontaneous
  Country: US (occurrence: US)
  Receive Date: 20210917
  Receipt Date: 20210917
  Transmission Date: 20211014
  Serious: Yes (Other)
  Sender: FDA-Public Use
  Company Number: US-AMGEN-USASP2021142336

PATIENT
  Age: 56 Year
  Sex: Female

DRUGS (5)
  1. CELEBREX [Concomitant]
     Active Substance: CELECOXIB
     Dosage: UNK
  2. OTEZLA [Suspect]
     Active Substance: APREMILAST
     Indication: PSORIATIC ARTHROPATHY
     Dosage: 30 MILLIGRAM, BID
     Route: 065
  3. OTEZLA [Suspect]
     Active Substance: APREMILAST
     Dosage: 30 MILLIGRAM, BID
     Route: 065
     Dates: start: 20210911
  4. RITUXIMAB. [Concomitant]
     Active Substance: RITUXIMAB
  5. COVID?19 VACCINE [Concomitant]
     Dosage: UNK

REACTIONS (2)
  - Intentional product misuse [Unknown]
  - Psoriatic arthropathy [Unknown]

NARRATIVE: CASE EVENT DATE: 202108
